FAERS Safety Report 5401695-6 (Version None)
Quarter: 2007Q3

REPORT INFORMATION
  Report Type: 
  Country: None (occurrence: None)
  Receive Date: 20070731
  Receipt Date: 20070719
  Transmission Date: 20080115
  Serious: Yes (Other)
  Sender: FDA-Public Use
  Company Number: US-PFIZER INC-2007059412

PATIENT
  Sex: Female

DRUGS (1)
  1. SUTENT [Suspect]
     Indication: MYELODYSPLASTIC SYNDROME
     Route: 048

REACTIONS (2)
  - DIARRHOEA [None]
  - MENTAL STATUS CHANGES [None]
